FAERS Safety Report 12078191 (Version 3)
Quarter: 2016Q1

REPORT INFORMATION
  Report Type: Spontaneous
  Country: KR (occurrence: KR)
  Receive Date: 20160215
  Receipt Date: 20160308
  Transmission Date: 20160526
  Serious: Yes (Other)
  Sender: FDA-Public Use
  Company Number: KR-009507513-1508KOR001222

PATIENT
  Age: 58 Year
  Sex: Female
  Weight: 56 kg

DRUGS (16)
  1. BRIDION [Suspect]
     Active Substance: SUGAMMADEX
     Indication: NEUROMUSCULAR BLOCKADE REVERSAL
     Dosage: 112 MG, ONCE (2MG/KG)
     Route: 042
     Dates: start: 20150720, end: 20150720
  2. ROCURONIUM BROMIDE. [Suspect]
     Active Substance: ROCURONIUM BROMIDE
     Dosage: CONTIMUOS INFUSION WAS STARTED AS 100MG FROM 13:00 AND ADDITIONAL 50MG WAS STARTED FROM 16:35
     Route: 042
     Dates: start: 20150720, end: 20150720
  3. EPHEDRINE HYDROCHLORIDE [Concomitant]
     Active Substance: EPHEDRINE HYDROCHLORIDE
     Indication: BLOOD PRESSURE MANAGEMENT
     Dosage: 4 MG, ONCE
     Route: 042
     Dates: start: 20150720, end: 20150720
  4. NASEA [Concomitant]
     Active Substance: RAMOSETRON HYDROCHLORIDE
     Dosage: 0.6 MG, QD / INFUSION
     Route: 041
     Dates: start: 20150720
  5. FENTANYL. [Concomitant]
     Active Substance: FENTANYL
     Dosage: 1500 MCG, QD, INFUSION
     Route: 041
     Dates: start: 20150720
  6. ACUPAN [Concomitant]
     Active Substance: NEFOPAM HYDROCHLORIDE
     Indication: PAIN PROPHYLAXIS
     Dosage: 200 MG, QD / INFUSION
     Route: 041
     Dates: start: 20150720
  7. NASEA [Concomitant]
     Active Substance: RAMOSETRON HYDROCHLORIDE
     Indication: PROPHYLAXIS OF NAUSEA AND VOMITING
     Dosage: 0.3 MG, ONCE
     Route: 042
     Dates: start: 20150720, end: 20150720
  8. HEXAMEDIN [Concomitant]
     Indication: PROPHYLAXIS
     Dosage: 1 OTHER (TIMES), QD /GARGLE
     Route: 048
     Dates: start: 20150719, end: 20150719
  9. DENOGAN [Concomitant]
     Indication: PAIN PROPHYLAXIS
     Dosage: 2 G, ONCE
     Route: 008
     Dates: start: 20150720, end: 20150720
  10. TAMIPOOL [Concomitant]
     Active Substance: VITAMINS
     Indication: VITAMIN SUPPLEMENTATION
     Dosage: 5 ML, QD
     Route: 042
     Dates: start: 20150721, end: 20150725
  11. ROCURONIUM BROMIDE. [Suspect]
     Active Substance: ROCURONIUM BROMIDE
     Indication: HYPOTONIA
     Dosage: 25 MG, QD
     Route: 042
     Dates: start: 20150720, end: 20150720
  12. FENTANYL. [Concomitant]
     Active Substance: FENTANYL
     Indication: PAIN PROPHYLAXIS
     Dosage: 100 MICROGRAM, ONCE
     Route: 008
     Dates: start: 20150720, end: 20150720
  13. ZIBOR [Concomitant]
     Indication: THROMBOSIS PROPHYLAXIS
     Dosage: 2500 IU, QD
     Route: 058
     Dates: start: 20150721, end: 20150726
  14. ZENOCEF (CEFAZEDONE SODIUM) [Concomitant]
     Indication: INFECTION PROPHYLAXIS
     Dosage: 1 G, BID
     Route: 042
     Dates: start: 20150720, end: 20150720
  15. DULCOLAX NOS [Concomitant]
     Active Substance: BISACODYL OR DOCUSATE SODIUM
     Indication: BOWEL PREPARATION
     Dosage: 20 MG, ONCE
     Route: 054
     Dates: start: 20150719, end: 20150719
  16. HALCION [Concomitant]
     Active Substance: TRIAZOLAM
     Indication: PROPHYLAXIS
     Dosage: 0.25 MG, ONCE
     Route: 048
     Dates: start: 20150720, end: 20150720

REACTIONS (4)
  - Pain in extremity [Recovered/Resolved]
  - Pruritus [Recovered/Resolved]
  - Abdominal distension [Recovered/Resolved]
  - Tachycardia [Recovered/Resolved]

NARRATIVE: CASE EVENT DATE: 20150721
